FAERS Safety Report 7502824-0 (Version None)
Quarter: 2011Q2

REPORT INFORMATION
  Report Type: 
  Country: None (occurrence: None)
  Receive Date: 20110525
  Receipt Date: 20100830
  Transmission Date: 20111010
  Serious: No
  Sender: FDA-Public Use
  Company Number: US-NOVEN-ALL1-2010-04562

PATIENT
  Sex: Female
  Weight: 54.422 kg

DRUGS (2)
  1. RITALIN [Concomitant]
     Dosage: 10 MG, 1X/DAY:QD
     Route: 048
     Dates: start: 20080101
  2. DAYTRANA [Suspect]
     Dosage: 30 MG, 1X/DAY:QD
     Route: 062
     Dates: start: 20100730

REACTIONS (3)
  - APPLICATION SITE RASH [None]
  - OFF LABEL USE [None]
  - APPLICATION SITE PRURITUS [None]
